FAERS Safety Report 20807680 (Version 1)
Quarter: 2022Q2

REPORT INFORMATION
  Report Type: Spontaneous
  Country: US (occurrence: None)
  Receive Date: 20220509
  Receipt Date: 20220509
  Transmission Date: 20220721
  Serious: Yes (Hospitalization)
  Sender: FDA-Public Use
  Company Number: None

PATIENT
  Age: 73 Year
  Sex: Male
  Weight: 152 kg

DRUGS (1)
  1. CEFTAROLINE [Suspect]
     Active Substance: CEFTAROLINE
     Indication: Infection
     Dosage: FREQUENCY : 3 TIMES A DAY;?
     Route: 042
     Dates: start: 20211228, end: 20220109

REACTIONS (5)
  - Platelet transfusion [None]
  - Immune thrombocytopenia [None]
  - Drug hypersensitivity [None]
  - Anti-platelet antibody positive [None]
  - Drug specific antibody present [None]

NARRATIVE: CASE EVENT DATE: 20220109
